FAERS Safety Report 12655027 (Version 5)
Quarter: 2016Q4

REPORT INFORMATION
  Report Type: Report from Study
  Country: US (occurrence: US)
  Receive Date: 20160816
  Receipt Date: 20161220
  Transmission Date: 20170207
  Serious: Yes (Death, Hospitalization)
  Sender: FDA-Public Use
  Company Number: US-EISAI MEDICAL RESEARCH-EC-2016-018715

PATIENT
  Age: 69 Year
  Sex: Male
  Weight: 83.1 kg

DRUGS (11)
  1. PHENOL TOPICAL [Concomitant]
  2. SERTRALINE [Concomitant]
     Active Substance: SERTRALINE HYDROCHLORIDE
  3. LEVOTHYROXINE. [Concomitant]
     Active Substance: LEVOTHYROXINE
  4. OMEPRAZOLE. [Concomitant]
     Active Substance: OMEPRAZOLE
  5. ATORVASTATIN [Concomitant]
     Active Substance: ATORVASTATIN
  6. NUTREN [Concomitant]
  7. DEXAMETHASONE. [Concomitant]
     Active Substance: DEXAMETHASONE
  8. LENVATINIB [Suspect]
     Active Substance: LENVATINIB
     Indication: PAPILLARY THYROID CANCER
     Route: 048
     Dates: start: 20160630, end: 20160714
  9. HYDROCHLOROTHIAZIDE VALSARTAN [Concomitant]
     Active Substance: HYDROCHLOROTHIAZIDE\VALSARTAN
  10. HYDROMORPHONE [Concomitant]
     Active Substance: HYDROMORPHONE
  11. LANSOPRAZOLE. [Concomitant]
     Active Substance: LANSOPRAZOLE

REACTIONS (2)
  - Oesophageal fistula [Fatal]
  - Aspiration [Recovering/Resolving]

NARRATIVE: CASE EVENT DATE: 20160715
